FAERS Safety Report 22136226 (Version 1)
Quarter: 2023Q1

REPORT INFORMATION
  Report Type: Spontaneous
  Country: CN (occurrence: None)
  Receive Date: 20230324
  Receipt Date: 20230324
  Transmission Date: 20230417
  Serious: Yes (Other)
  Sender: FDA-Public Use
  Company Number: 2023A066779

PATIENT
  Age: 32479 Day
  Sex: Male
  Weight: 60 kg

DRUGS (1)
  1. DAPAGLIFLOZIN [Suspect]
     Active Substance: DAPAGLIFLOZIN
     Indication: Diabetes mellitus
     Route: 048
     Dates: start: 20230206, end: 20230224

REACTIONS (2)
  - Pollakiuria [Recovering/Resolving]
  - Hypertonic bladder [Unknown]

NARRATIVE: CASE EVENT DATE: 20230216
